FAERS Safety Report 5637531-2 (Version None)
Quarter: 2008Q1

REPORT INFORMATION
  Report Type: 
  Country: None (occurrence: None)
  Receive Date: 20080219
  Receipt Date: 20080201
  Transmission Date: 20080703
  Serious: Yes (Death)
  Sender: FDA-Public Use
  Company Number: 08-174

PATIENT
  Sex: Female
  Weight: 100.6985 kg

DRUGS (1)
  1. FAZACLO ODT [Suspect]
     Dosage: 200 MG PO DAILY
     Route: 048
     Dates: start: 20070816, end: 20071209

REACTIONS (2)
  - PNEUMONIA [None]
  - RESPIRATORY DISTRESS [None]
